FAERS Safety Report 10975083 (Version 2)
Quarter: 2015Q2

REPORT INFORMATION
  Report Type: Spontaneous
  Country: BR (occurrence: BR)
  Receive Date: 20150401
  Receipt Date: 20150528
  Transmission Date: 20150821
  Serious: Yes (Other)
  Sender: FDA-Public Use
  Company Number: BR-PFIZER INC-2015017123

PATIENT
  Age: 41 Year
  Sex: Female

DRUGS (2)
  1. GENOTROPIN [Suspect]
     Active Substance: SOMATROPIN
     Indication: GROWTH HORMONE DEFICIENCY
     Dosage: 4.5 (UNSPECIFIED UNIT), 1X/DAY AT NIGHT
     Dates: start: 201408, end: 201412
  2. GESTINOL 28 [Concomitant]
     Dosage: UNK
     Dates: start: 2012

REACTIONS (3)
  - Gastritis [Recovered/Resolved]
  - Intentional product misuse [Unknown]
  - Drug ineffective [Not Recovered/Not Resolved]

NARRATIVE: CASE EVENT DATE: 201412
